FAERS Safety Report 13611192 (Version 1)
Quarter: 2017Q2

REPORT INFORMATION
  Report Type: Spontaneous
  Country: US (occurrence: US)
  Receive Date: 20170604
  Receipt Date: 20170604
  Transmission Date: 20170830
  Serious: Yes (Other)
  Sender: FDA-Public Use
  Company Number: None

PATIENT
  Age: 53 Year
  Sex: Male
  Weight: 99 kg

DRUGS (4)
  1. ZOLOFT [Concomitant]
     Active Substance: SERTRALINE HYDROCHLORIDE
  2. TRICOR [Concomitant]
     Active Substance: FENOFIBRATE
  3. ZYRTEC [Suspect]
     Active Substance: CETIRIZINE HYDROCHLORIDE
     Indication: SEASONAL ALLERGY
     Dates: start: 20170603, end: 20170604
  4. FLAX SSED OIL [Concomitant]

REACTIONS (6)
  - Palpitations [None]
  - Heart rate irregular [None]
  - Anxiety [None]
  - Dry mouth [None]
  - Feeling abnormal [None]
  - Insomnia [None]

NARRATIVE: CASE EVENT DATE: 20170603
